FAERS Safety Report 19014075 (Version 3)
Quarter: 2021Q2

REPORT INFORMATION
  Report Type: Spontaneous
  Country: CO (occurrence: CO)
  Receive Date: 20210316
  Receipt Date: 20210506
  Transmission Date: 20210717
  Serious: No
  Sender: FDA-Public Use
  Company Number: CO-PFIZER INC-2021240610

PATIENT
  Sex: Female

DRUGS (3)
  1. ENBREL [Suspect]
     Active Substance: ETANERCEPT
     Dosage: UNK
  2. ENBREL [Suspect]
     Active Substance: ETANERCEPT
     Dosage: UNK
     Dates: start: 2017
  3. ENBREL [Suspect]
     Active Substance: ETANERCEPT
     Dosage: UNK

REACTIONS (5)
  - Peripheral swelling [Unknown]
  - Product dose omission issue [Unknown]
  - Pain in extremity [Unknown]
  - Illness [Unknown]
  - Device issue [Unknown]

NARRATIVE: CASE EVENT DATE: 202011
